FAERS Safety Report 20950662 (Version 8)
Quarter: 2025Q2

REPORT INFORMATION
  Report Type: Report from Study
  Country: US (occurrence: US)
  Receive Date: 20220613
  Receipt Date: 20250501
  Transmission Date: 20250717
  Serious: Yes (Hospitalization, Other)
  Sender: TAKEDA
  Company Number: US-TAKEDA-2022TUS038957

PATIENT
  Age: 69 Year
  Sex: Male
  Weight: 86.2 kg

DRUGS (10)
  1. HUMAN IMMUNOGLOBULIN G [Suspect]
     Active Substance: HUMAN IMMUNOGLOBULIN G
     Indication: Immunodeficiency common variable
     Dosage: 20 GRAM, Q2WEEKS
  2. ACETAMINOPHEN [Concomitant]
     Active Substance: ACETAMINOPHEN
  3. DIPHENHYDRAMINE HYDROCHLORIDE [Concomitant]
     Active Substance: DIPHENHYDRAMINE HYDROCHLORIDE
  4. EPINEPHRINE [Concomitant]
     Active Substance: EPINEPHRINE
  5. Lmx [Concomitant]
  6. LEVOTHYROXINE [Concomitant]
     Active Substance: LEVOTHYROXINE
  7. ASPIRIN [Concomitant]
     Active Substance: ASPIRIN
  8. CARVEDILOL [Concomitant]
     Active Substance: CARVEDILOL
  9. FINASTERIDE [Concomitant]
     Active Substance: FINASTERIDE
  10. LEVOTHYROXINE [Concomitant]
     Active Substance: LEVOTHYROXINE

REACTIONS (8)
  - Pneumonia [Unknown]
  - Pneumonia bacterial [Not Recovered/Not Resolved]
  - Myelodysplastic syndrome [Unknown]
  - Haematological infection [Unknown]
  - Nasopharyngitis [Unknown]
  - Blood cholesterol abnormal [Unknown]
  - Oral bacterial infection [Unknown]
  - Product dose omission issue [Unknown]

NARRATIVE: CASE EVENT DATE: 20220603
